FAERS Safety Report 14261023 (Version 1)
Quarter: 2017Q4

REPORT INFORMATION
  Report Type: Spontaneous
  Country: JP (occurrence: JP)
  Receive Date: 20171207
  Receipt Date: 20171207
  Transmission Date: 20180321
  Serious: Yes (Other)
  Sender: FDA-Public Use
  Company Number: PHHY2017JP178735

PATIENT
  Age: 84 Year
  Sex: Female

DRUGS (2)
  1. PREDNISOLONE. [Suspect]
     Active Substance: PREDNISOLONE
     Indication: OCULAR VASCULITIS
     Dosage: 40 MG, QD
     Route: 065
  2. METHOTREXATE. [Suspect]
     Active Substance: METHOTREXATE
     Indication: OCULAR VASCULITIS
     Route: 065

REACTIONS (6)
  - Product use in unapproved indication [Unknown]
  - Anaemia [Unknown]
  - Leukocytosis [Unknown]
  - Blindness [Unknown]
  - Diffuse large B-cell lymphoma [Unknown]
  - Thrombocytopenia [Unknown]
